FAERS Safety Report 16062251 (Version 2)
Quarter: 2019Q1

REPORT INFORMATION
  Report Type: Report from Study
  Country: None (occurrence: US)
  Receive Date: 20190312
  Receipt Date: 20190329
  Transmission Date: 20190418
  Serious: Yes (Hospitalization)
  Sender: FDA-Public Use
  Company Number: US-ABBVIE-19S-163-2695965-00

PATIENT
  Age: 70 Year
  Sex: Female

DRUGS (1)
  1. CREON [Suspect]
     Active Substance: PANCRELIPASE AMYLASE\PANCRELIPASE LIPASE\PANCRELIPASE PROTEASE
     Indication: PRODUCT USED FOR UNKNOWN INDICATION
     Route: 048
     Dates: start: 20171221

REACTIONS (12)
  - Incision site pain [Unknown]
  - Diarrhoea [Unknown]
  - Flatulence [Unknown]
  - Asthenia [Unknown]
  - Abdominal distension [Unknown]
  - Procedural pain [Unknown]
  - Flatulence [Unknown]
  - Anal incontinence [Unknown]
  - Abdominal distension [Unknown]
  - Urinary tract infection [Unknown]
  - Hernia [Unknown]
  - Anal incontinence [Unknown]

NARRATIVE: CASE EVENT DATE: 20180807
